FAERS Safety Report 23108474 (Version 1)
Quarter: 2023Q4

REPORT INFORMATION
  Report Type: Report from Study
  Country: US (occurrence: US)
  Receive Date: 20231026
  Receipt Date: 20231026
  Transmission Date: 20240109
  Serious: Yes (Other)
  Sender: FDA-Public Use
  Company Number: US-MYLANLABS-2023M1110847

PATIENT
  Age: 66 Year
  Sex: Female
  Weight: 81.19 kg

DRUGS (1)
  1. YUPELRI [Suspect]
     Active Substance: REVEFENACIN
     Indication: Emphysema
     Dosage: 175 MICROGRAM/3ML, QD
     Route: 055
     Dates: start: 20230919, end: 20230922

REACTIONS (3)
  - Dyspnoea [Recovered/Resolved]
  - Hypersensitivity [Unknown]
  - Drug ineffective [Unknown]

NARRATIVE: CASE EVENT DATE: 20230919
